FAERS Safety Report 23635932 (Version 3)
Quarter: 2024Q1

REPORT INFORMATION
  Report Type: Spontaneous
  Country: CN (occurrence: None)
  Receive Date: 20240315
  Receipt Date: 20240328
  Transmission Date: 20240410
  Serious: Yes (Hospitalization)
  Sender: FDA-Public Use
  Company Number: CN-ROCHE-3525847

PATIENT
  Age: 12 Year
  Sex: Female

DRUGS (6)
  1. EVRYSDI [Suspect]
     Active Substance: RISDIPLAM
     Indication: Spinal muscular atrophy
     Route: 048
     Dates: start: 202308, end: 20240212
  2. LICORICE [Concomitant]
     Active Substance: LICORICE
     Indication: Spinal muscular atrophy
     Route: 048
  3. GLYCYRRHIZIN [Concomitant]
     Active Substance: GLYCYRRHIZIN
     Indication: Spinal muscular atrophy
     Dosage: 2 TIMES PER DAY, 1 TABLET PER TIME.
     Route: 048
     Dates: start: 20230818
  4. GLYCYRRHIZIN [Concomitant]
     Active Substance: GLYCYRRHIZIN
     Dosage: 3 TIMES PER DAY, 1 TABLET PER TIME.
     Route: 048
  5. URSODIOL [Concomitant]
     Active Substance: URSODIOL
     Indication: Spinal muscular atrophy
     Dosage: 1 CAPSULE IN THE MORNING AND HALF A CAPSUAL IN THE EVENING.
     Route: 048
  6. NUSINERSEN [Concomitant]
     Active Substance: NUSINERSEN
     Indication: Spinal muscular atrophy

REACTIONS (2)
  - Alanine aminotransferase increased [Unknown]
  - Cholelithiasis [Unknown]
